FAERS Safety Report 16492033 (Version 3)
Quarter: 2019Q3

REPORT INFORMATION
  Report Type: Report from Study
  Country: JP (occurrence: JP)
  Receive Date: 20190628
  Receipt Date: 20190910
  Transmission Date: 20191004
  Serious: Yes (Hospitalization, Other)
  Sender: FDA-Public Use
  Company Number: JP-ROCHE-2341855

PATIENT
  Age: 57 Year
  Sex: Female
  Weight: 50 kg

DRUGS (41)
  1. TACROLIMUS. [Suspect]
     Active Substance: TACROLIMUS
     Route: 042
     Dates: start: 20171008, end: 20171008
  2. TACROLIMUS. [Suspect]
     Active Substance: TACROLIMUS
     Route: 042
     Dates: start: 20171014, end: 20171014
  3. TACROLIMUS. [Suspect]
     Active Substance: TACROLIMUS
     Route: 042
     Dates: start: 20171015, end: 20171015
  4. TACROLIMUS. [Suspect]
     Active Substance: TACROLIMUS
     Route: 042
     Dates: start: 20171016, end: 20171016
  5. PREDNISOLONE. [Concomitant]
     Active Substance: PREDNISOLONE
     Indication: PROPHYLAXIS AGAINST TRANSPLANT REJECTION
     Route: 048
     Dates: start: 20170925, end: 20171005
  6. TACROLIMUS. [Suspect]
     Active Substance: TACROLIMUS
     Route: 042
     Dates: start: 20171001, end: 20171001
  7. TACROLIMUS. [Suspect]
     Active Substance: TACROLIMUS
     Route: 042
     Dates: start: 20171002, end: 20171002
  8. TACROLIMUS. [Suspect]
     Active Substance: TACROLIMUS
     Route: 042
     Dates: start: 20171012, end: 20171012
  9. VICCILLIN [AMPICILLIN] [Concomitant]
     Indication: SEPSIS
     Route: 042
     Dates: start: 20170930
  10. RITUXAN [Suspect]
     Active Substance: RITUXIMAB
     Indication: PROPHYLAXIS AGAINST TRANSPLANT REJECTION
     Route: 041
     Dates: start: 20170815, end: 20170815
  11. TACROLIMUS. [Suspect]
     Active Substance: TACROLIMUS
     Route: 042
     Dates: start: 20171006, end: 20171006
  12. METHYLPREDNISOLONE NA SUCCINATE [Concomitant]
     Active Substance: METHYLPREDNISOLONE SODIUM SUCCINATE
     Indication: PROPHYLAXIS AGAINST TRANSPLANT REJECTION
     Route: 042
     Dates: start: 20170829, end: 20170905
  13. METHYLPREDNISOLONE NA SUCCINATE [Concomitant]
     Active Substance: METHYLPREDNISOLONE SODIUM SUCCINATE
     Route: 042
     Dates: start: 20170911, end: 20170912
  14. METHYLPREDNISOLONE NA SUCCINATE [Concomitant]
     Active Substance: METHYLPREDNISOLONE SODIUM SUCCINATE
     Route: 042
     Dates: start: 20170913, end: 20170914
  15. METHYLPREDNISOLONE NA SUCCINATE [Concomitant]
     Active Substance: METHYLPREDNISOLONE SODIUM SUCCINATE
     Route: 042
     Dates: start: 20170915, end: 20170924
  16. CLAFORAN [Concomitant]
     Active Substance: CEFOTAXIME SODIUM
     Indication: INFECTION PROPHYLAXIS
     Route: 042
     Dates: start: 20170829, end: 20170905
  17. TACROLIMUS. [Suspect]
     Active Substance: TACROLIMUS
     Route: 042
     Dates: start: 20171003, end: 20171003
  18. TACROLIMUS. [Suspect]
     Active Substance: TACROLIMUS
     Route: 042
     Dates: start: 20171004, end: 20171004
  19. TACROLIMUS. [Suspect]
     Active Substance: TACROLIMUS
     Route: 042
     Dates: start: 20171011, end: 20171011
  20. TACROLIMUS. [Suspect]
     Active Substance: TACROLIMUS
     Route: 042
     Dates: start: 20171018, end: 20171018
  21. METHYLPREDNISOLONE NA SUCCINATE [Concomitant]
     Active Substance: METHYLPREDNISOLONE SODIUM SUCCINATE
     Route: 042
     Dates: start: 20170909, end: 20170910
  22. TAZOPIPE [Concomitant]
     Active Substance: PIPERACILLIN SODIUM\TAZOBACTAM SODIUM
     Route: 042
     Dates: start: 20171002, end: 20171006
  23. CELLCEPT [Suspect]
     Active Substance: MYCOPHENOLATE MOFETIL\MYCOPHENOLATE MOFETIL HYDROCHLORIDE
     Route: 048
     Dates: start: 20170821, end: 20170828
  24. FUNGUARD [Concomitant]
     Active Substance: MICAFUNGIN SODIUM
     Indication: INFECTION PROPHYLAXIS
     Route: 042
     Dates: start: 20170829, end: 20170911
  25. TACROLIMUS. [Suspect]
     Active Substance: TACROLIMUS
     Indication: PROPHYLAXIS AGAINST TRANSPLANT REJECTION
     Route: 042
     Dates: start: 20170929, end: 20170929
  26. TACROLIMUS. [Suspect]
     Active Substance: TACROLIMUS
     Route: 042
     Dates: start: 20171007, end: 20171007
  27. CELLCEPT [Suspect]
     Active Substance: MYCOPHENOLATE MOFETIL\MYCOPHENOLATE MOFETIL HYDROCHLORIDE
     Indication: PROPHYLAXIS AGAINST TRANSPLANT REJECTION
     Route: 048
     Dates: start: 20170830, end: 20171023
  28. CELLCEPT [Suspect]
     Active Substance: MYCOPHENOLATE MOFETIL\MYCOPHENOLATE MOFETIL HYDROCHLORIDE
     Route: 048
     Dates: start: 20171024
  29. METHYLPREDNISOLONE NA SUCCINATE [Concomitant]
     Active Substance: METHYLPREDNISOLONE SODIUM SUCCINATE
     Route: 042
     Dates: start: 20170906, end: 20170908
  30. TACROLIMUS. [Suspect]
     Active Substance: TACROLIMUS
     Route: 042
     Dates: start: 20170930, end: 20170930
  31. TACROLIMUS. [Suspect]
     Active Substance: TACROLIMUS
     Route: 042
     Dates: start: 20171009, end: 20171009
  32. TACROLIMUS. [Suspect]
     Active Substance: TACROLIMUS
     Route: 042
     Dates: start: 20171013, end: 20171013
  33. METHYLPREDNISOLONE NA SUCCINATE [Concomitant]
     Active Substance: METHYLPREDNISOLONE SODIUM SUCCINATE
     Route: 042
     Dates: start: 20170908, end: 20170908
  34. TACROLIMUS. [Suspect]
     Active Substance: TACROLIMUS
     Route: 042
     Dates: start: 20171005, end: 20171005
  35. TACROLIMUS. [Suspect]
     Active Substance: TACROLIMUS
     Route: 042
     Dates: start: 20171010, end: 20171010
  36. TACROLIMUS. [Suspect]
     Active Substance: TACROLIMUS
     Route: 042
     Dates: start: 20171017, end: 20171017
  37. TACROLIMUS. [Suspect]
     Active Substance: TACROLIMUS
     Route: 048
     Dates: start: 20170828, end: 20190621
  38. VICCILLIN [AMPICILLIN] [Concomitant]
     Indication: INFECTION PROPHYLAXIS
     Route: 042
     Dates: start: 20170829, end: 20170905
  39. TAZOPIPE [Concomitant]
     Active Substance: PIPERACILLIN SODIUM\TAZOBACTAM SODIUM
     Indication: SEPSIS
     Route: 042
     Dates: start: 20170910, end: 20170911
  40. VANCOMYCIN [Concomitant]
     Active Substance: VANCOMYCIN
     Indication: SEPSIS
     Route: 042
     Dates: start: 20170924, end: 20170928
  41. MEROPEN [MEROPENEM TRIHYDRATE] [Concomitant]
     Active Substance: MEROPENEM
     Indication: SEPSIS
     Route: 042
     Dates: start: 20171007

REACTIONS (6)
  - Sepsis [Unknown]
  - Biliary tract disorder [Recovered/Resolved]
  - Pneumonia [Recovered/Resolved]
  - Gamma-glutamyltransferase increased [Recovering/Resolving]
  - Large intestine perforation [Recovered/Resolved]
  - Cytomegalovirus viraemia [Recovered/Resolved]

NARRATIVE: CASE EVENT DATE: 20170919
